FAERS Safety Report 24680512 (Version 1)
Quarter: 2024Q4

REPORT INFORMATION
  Report Type: Spontaneous
  Country: CN (occurrence: CN)
  Receive Date: 20241129
  Receipt Date: 20241129
  Transmission Date: 20250114
  Serious: Yes (Hospitalization)
  Sender: PFIZER
  Company Number: CN-PFIZER INC-PV202400153456

PATIENT
  Age: 52 Year
  Sex: Female
  Weight: 64 kg

DRUGS (2)
  1. PACLITAXEL [Suspect]
     Active Substance: PACLITAXEL
     Indication: Ovarian cancer
     Dosage: 240 MG, 1X/DAY D1
     Route: 041
     Dates: start: 20241022, end: 20241022
  2. CISPLATIN [Suspect]
     Active Substance: CISPLATIN
     Indication: Ovarian cancer
     Dosage: 40 MG, D1-D3 Q3W
     Route: 041
     Dates: start: 20241022, end: 20241024

REACTIONS (4)
  - Vomiting [Recovering/Resolving]
  - Feeding disorder [Recovering/Resolving]
  - Abdominal distension [Recovering/Resolving]
  - Dyschezia [Recovering/Resolving]

NARRATIVE: CASE EVENT DATE: 20241001
